FAERS Safety Report 15742824 (Version 1)
Quarter: 2018Q4

REPORT INFORMATION
  Report Type: Spontaneous
  Country: DE (occurrence: DE)
  Receive Date: 20181219
  Receipt Date: 20181219
  Transmission Date: 20190205
  Serious: Yes (Other)
  Sender: FDA-Public Use
  Company Number: DE-MYLANLABS-2018M1094533

PATIENT
  Age: 69 Year
  Sex: Male

DRUGS (5)
  1. CETUXIMAB. [Suspect]
     Active Substance: CETUXIMAB
     Dosage: 400MG/M2 IN FIRST CYCLE, THEN 250 MG/M2
     Route: 065
     Dates: start: 201512, end: 201603
  2. FLUOROURACIL. [Suspect]
     Active Substance: FLUOROURACIL
     Indication: METASTATIC SQUAMOUS CELL CARCINOMA
     Dosage: 1 DF, UNK
     Route: 065
  3. CARBOPLATIN. [Suspect]
     Active Substance: CARBOPLATIN
     Indication: METASTATIC SQUAMOUS CELL CARCINOMA
     Dosage: AUC 5
     Route: 065
     Dates: start: 201512, end: 201603
  4. CARBOPLATIN. [Suspect]
     Active Substance: CARBOPLATIN
     Dosage: AUC5-4
     Route: 065
     Dates: start: 201606
  5. CETUXIMAB. [Suspect]
     Active Substance: CETUXIMAB
     Indication: METASTATIC SQUAMOUS CELL CARCINOMA
     Dosage: 400MG/M2 IN FIRST CYCLE, THEN 250 MG/M2
     Route: 065
     Dates: start: 201606, end: 201610

REACTIONS (1)
  - Malignant neoplasm progression [Unknown]
